FAERS Safety Report 9051974 (Version 1)
Quarter: 2013Q1

REPORT INFORMATION
  Report Type: Spontaneous
  Country: US (occurrence: US)
  Receive Date: 20130207
  Receipt Date: 20130207
  Transmission Date: 20140127
  Serious: No
  Sender: FDA-Public Use
  Company Number: US-009507513-1302USA001377

PATIENT
  Sex: 0

DRUGS (1)
  1. DECADRON [Suspect]
     Dosage: UNK
     Dates: start: 20121224

REACTIONS (3)
  - Injection site erythema [Unknown]
  - Injection site scab [Unknown]
  - Injection site pain [Unknown]
